FAERS Safety Report 17675358 (Version 1)
Quarter: 2020Q2

REPORT INFORMATION
  Report Type: Report from Study
  Country: US (occurrence: US)
  Receive Date: 20200416
  Receipt Date: 20200416
  Transmission Date: 20200714
  Serious: Yes (Death, Life-Threatening, Hospitalization)
  Sender: FDA-Public Use
  Company Number: US-TORRENT-00010163

PATIENT
  Age: 40 Year
  Sex: Female

DRUGS (2)
  1. HALOPERIDOL. [Suspect]
     Active Substance: HALOPERIDOL
     Indication: PANIC DISORDER
     Dosage: UNKNOWN
     Route: 042
  2. RISPERIDONE. [Suspect]
     Active Substance: RISPERIDONE
     Indication: SCHIZOAFFECTIVE DISORDER
     Dosage: UNKNOWN
     Route: 048

REACTIONS (4)
  - Neuroleptic malignant syndrome [Not Recovered/Not Resolved]
  - Sepsis [Fatal]
  - Cardiac arrest [Fatal]
  - Pneumonia [Fatal]
